FAERS Safety Report 12306542 (Version 1)
Quarter: 2016Q2

REPORT INFORMATION
  Report Type: Spontaneous
  Country: US (occurrence: US)
  Receive Date: 20160426
  Receipt Date: 20160426
  Transmission Date: 20160815
  Serious: Yes (Hospitalization, Other)
  Sender: FDA-Public Use
  Company Number: US-SA-2016SA077854

PATIENT
  Age: 88 Year
  Sex: Female
  Weight: 102 kg

DRUGS (17)
  1. OMEGA 3-6-9 [Concomitant]
     Active Substance: FISH OIL
  2. COREG CR [Suspect]
     Active Substance: CARVEDILOL PHOSPHATE
     Indication: CARDIAC FAILURE CONGESTIVE
     Route: 048
     Dates: start: 20140815
  3. VITAMIN C [Concomitant]
     Active Substance: ASCORBIC ACID
  4. PRILOSEC [Concomitant]
     Active Substance: OMEPRAZOLE MAGNESIUM
  5. LASIX [Suspect]
     Active Substance: FUROSEMIDE
     Route: 065
     Dates: end: 2015
  6. IMDUR [Concomitant]
     Active Substance: ISOSORBIDE MONONITRATE
  7. HYDROXYUREA. [Concomitant]
     Active Substance: HYDROXYUREA
  8. ZOLOFT [Concomitant]
     Active Substance: SERTRALINE HYDROCHLORIDE
  9. CENTRUM CARDIO [Concomitant]
     Active Substance: VITAMINS
  10. LOVASTATIN. [Concomitant]
     Active Substance: LOVASTATIN
  11. COREG CR [Suspect]
     Active Substance: CARVEDILOL PHOSPHATE
     Indication: CARDIAC FAILURE CONGESTIVE
     Route: 048
     Dates: start: 200711
  12. COREG CR [Suspect]
     Active Substance: CARVEDILOL PHOSPHATE
     Indication: CARDIAC FAILURE CONGESTIVE
     Route: 048
  13. ALDACTONE [Concomitant]
     Active Substance: SPIRONOLACTONE
  14. LOSARTAN. [Concomitant]
     Active Substance: LOSARTAN
  15. WARFARIN [Concomitant]
     Active Substance: WARFARIN
  16. LUMIGAN [Concomitant]
     Active Substance: BIMATOPROST
  17. VITAMIN E [Concomitant]
     Active Substance: .ALPHA.-TOCOPHEROL

REACTIONS (24)
  - Fatigue [Not Recovered/Not Resolved]
  - Haemorrhage [Recovered/Resolved]
  - Gastrointestinal haemorrhage [Unknown]
  - Blood test abnormal [Not Recovered/Not Resolved]
  - Dyspnoea [Unknown]
  - Vomiting [Unknown]
  - Weight decreased [Unknown]
  - Decreased appetite [Unknown]
  - Visual impairment [Not Recovered/Not Resolved]
  - Impaired healing [Unknown]
  - Dysgeusia [Unknown]
  - Ulcer [Not Recovered/Not Resolved]
  - Abdominal distension [Unknown]
  - Contusion [Unknown]
  - Swelling [Unknown]
  - Arrhythmia [Not Recovered/Not Resolved]
  - Haematological malignancy [Unknown]
  - Head injury [Unknown]
  - Fall [Recovering/Resolving]
  - Neoplasm malignant [Not Recovered/Not Resolved]
  - Malaise [Not Recovered/Not Resolved]
  - Peroneal nerve palsy [Not Recovered/Not Resolved]
  - Cataract operation [Unknown]
  - Blood sodium decreased [Unknown]

NARRATIVE: CASE EVENT DATE: 20140501
